FAERS Safety Report 23840513 (Version 2)
Quarter: 2025Q2

REPORT INFORMATION
  Report Type: Spontaneous
  Country: US (occurrence: US)
  Receive Date: 20240510
  Receipt Date: 20250515
  Transmission Date: 20250717
  Serious: No
  Sender: UCB
  Company Number: US-UCBSA-2024007440

PATIENT
  Age: 30 Year
  Sex: Female

DRUGS (1)
  1. CIMZIA [Suspect]
     Active Substance: CERTOLIZUMAB PEGOL
     Indication: Product used for unknown indication
     Route: 058
     Dates: start: 202003

REACTIONS (5)
  - Hypersensitivity [Unknown]
  - Oropharyngeal pain [Unknown]
  - Cough [Unknown]
  - Ear discomfort [Unknown]
  - Infection [Unknown]

NARRATIVE: CASE EVENT DATE: 20211110
